FAERS Safety Report 23586411 (Version 1)
Quarter: 2024Q1

REPORT INFORMATION
  Report Type: Spontaneous
  Country: JP (occurrence: JP)
  Receive Date: 20240301
  Receipt Date: 20240301
  Transmission Date: 20240409
  Serious: Yes (Other)
  Sender: FDA-Public Use
  Company Number: JP-Eisai-202314347_LEN-EC_P_1

PATIENT
  Age: 69 Year
  Sex: Female

DRUGS (3)
  1. LENVIMA [Suspect]
     Active Substance: LENVATINIB
     Indication: Endometrial cancer
     Dosage: DOSE AND FREQUENCY UNKNOWN
     Route: 048
  2. LENVIMA [Suspect]
     Active Substance: LENVATINIB
     Dosage: DOSE AND FREQUENCY UNKNOWN (DOSE REDUCED)
     Route: 048
  3. KEYTRUDA [Concomitant]
     Active Substance: PEMBROLIZUMAB
     Indication: Endometrial cancer
     Dosage: DOSE AND FREQUENCY UNKNOWN
     Route: 041

REACTIONS (11)
  - Interstitial lung disease [Unknown]
  - Nausea [Unknown]
  - Malaise [Unknown]
  - Injection site rash [Unknown]
  - Platelet count decreased [Unknown]
  - Anaemia [Unknown]
  - Blood pressure increased [Unknown]
  - Hypothyroidism [Unknown]
  - Blood creatinine increased [Unknown]
  - Decreased appetite [Unknown]
  - Arthralgia [Unknown]
